FAERS Safety Report 7226092-2 (Version None)
Quarter: 2011Q1

REPORT INFORMATION
  Report Type: 
  Country: None (occurrence: None)
  Receive Date: 20110113
  Receipt Date: 20110107
  Transmission Date: 20110831
  Serious: No
  Sender: FDA-Public Use
  Company Number: US-B.I. PHARMACEUTICALS,INC./RIDGEFIELD-2011-CN-00021CN

PATIENT
  Sex: Male

DRUGS (2)
  1. AVODART [Concomitant]
  2. FLOMAX [Suspect]
     Indication: PROSTATOMEGALY
     Dosage: 0.4 MG
     Dates: start: 20080101

REACTIONS (3)
  - DIZZINESS [None]
  - PENIS DISORDER [None]
  - PROSTATE EXAMINATION ABNORMAL [None]
